FAERS Safety Report 6651296-7 (Version None)
Quarter: 2010Q1

REPORT INFORMATION
  Report Type: 
  Country: None (occurrence: None)
  Receive Date: 20100322
  Receipt Date: 20100308
  Transmission Date: 20100710
  Serious: Yes (Other)
  Sender: FDA-Public Use
  Company Number: IT-1181163

PATIENT
  Age: 56 Year
  Sex: Female

DRUGS (2)
  1. AZOPT [Suspect]
     Indication: GLAUCOMA
     Route: 047
     Dates: start: 20090901, end: 20091009
  2. BETA BLOCKING AGENTS             (BATA BLOCKING AGENTS) [Concomitant]

REACTIONS (2)
  - ALANINE AMINOTRANSFERASE INCREASED [None]
  - ASPARTATE AMINOTRANSFERASE INCREASED [None]
